FAERS Safety Report 7687429-3 (Version None)
Quarter: 2011Q3

REPORT INFORMATION
  Report Type: 
  Country: None (occurrence: None)
  Receive Date: 20110816
  Receipt Date: 20110805
  Transmission Date: 20111222
  Serious: Yes (Other)
  Sender: FDA-Public Use
  Company Number: PHEH2009US12471

PATIENT
  Sex: Female

DRUGS (2)
  1. AREDIA [Suspect]
  2. ZOMETA [Suspect]

REACTIONS (17)
  - GENERAL PHYSICAL HEALTH DETERIORATION [None]
  - PHYSICAL DISABILITY [None]
  - ECZEMA [None]
  - NEOPLASM PROGRESSION [None]
  - OSTEONECROSIS OF JAW [None]
  - SPINAL OSTEOARTHRITIS [None]
  - NEOPLASM MALIGNANT [None]
  - PAIN [None]
  - EMOTIONAL DISTRESS [None]
  - INFECTION [None]
  - BREAST CANCER IN SITU [None]
  - BACK PAIN [None]
  - METASTASES TO PELVIS [None]
  - DEFORMITY [None]
  - ANXIETY [None]
  - ROAD TRAFFIC ACCIDENT [None]
  - METASTASES TO SPINE [None]
